FAERS Safety Report 8496788-3 (Version None)
Quarter: 2012Q3

REPORT INFORMATION
  Report Type: 
  Country: None (occurrence: None)
  Receive Date: 20120709
  Receipt Date: 20120626
  Transmission Date: 20120928
  Serious: Yes (Other)
  Sender: FDA-Public Use
  Company Number: NL-MYLANLABS-2012S1012986

PATIENT
  Age: 27 Year
  Sex: Female

DRUGS (2)
  1. TERBINAFINE HCL [Suspect]
     Indication: ONYCHOMYCOSIS
     Dosage: 1 DD 250 MG
     Route: 048
     Dates: start: 20120417
  2. ITRACONAZOLE [Suspect]
     Indication: ONYCHOMYCOSIS
     Dosage: 1 DD 200 MG
     Route: 048
     Dates: start: 20120313

REACTIONS (1)
  - MIGRAINE WITH AURA [None]
